FAERS Safety Report 10674794 (Version 3)
Quarter: 2015Q1

REPORT INFORMATION
  Report Type: Report from Study
  Country: AT (occurrence: AT)
  Receive Date: 20141224
  Receipt Date: 20150127
  Transmission Date: 20150720
  Serious: Yes (Death)
  Sender: FDA-Public Use
  Company Number: AT-JNJFOC-20141216381

PATIENT
  Age: 90 Year
  Sex: Female

DRUGS (7)
  1. CYNARIX [Concomitant]
  2. BISOPROLOL [Concomitant]
     Active Substance: BISOPROLOL
  3. NAPROXEN. [Concomitant]
     Active Substance: NAPROXEN
  4. IBRUTINIB [Suspect]
     Active Substance: IBRUTINIB
     Indication: CHRONIC LYMPHOCYTIC LEUKAEMIA
     Dates: start: 201409, end: 201409
  5. LIDAPRIM [Concomitant]
     Indication: PROPHYLAXIS
     Dates: start: 20140912
  6. PANTOLOC [Concomitant]
     Active Substance: PANTOPRAZOLE SODIUM
  7. UROSIN [Concomitant]
     Active Substance: ALLOPURINOL

REACTIONS (3)
  - Hypertension [Unknown]
  - Diarrhoea [Fatal]
  - Atrial fibrillation [Unknown]

NARRATIVE: CASE EVENT DATE: 201409
